FAERS Safety Report 12666391 (Version 1)
Quarter: 2016Q3

REPORT INFORMATION
  Report Type: Spontaneous
  Country: CN (occurrence: CN)
  Receive Date: 20160818
  Receipt Date: 20160818
  Transmission Date: 20161109
  Serious: Yes (Hospitalization, Other)
  Sender: FDA-Public Use
  Company Number: CN-ELI_LILLY_AND_COMPANY-CN201608008412

PATIENT
  Age: 79 Year
  Sex: Female
  Weight: 55 kg

DRUGS (3)
  1. HUMALOG MIX50/50 [Suspect]
     Active Substance: INSULIN LISPRO
     Dosage: 22 U, EACH EVENING
     Route: 058
  2. HUMALOG MIX50/50 [Suspect]
     Active Substance: INSULIN LISPRO
     Indication: DIABETES MELLITUS
     Dosage: 25 U, EACH MORNING
     Route: 058
  3. ACARBOSE. [Concomitant]
     Active Substance: ACARBOSE

REACTIONS (7)
  - Haemorrhage [Unknown]
  - Swelling face [Unknown]
  - Eye injury [Unknown]
  - Cataract [Unknown]
  - Blindness [Unknown]
  - Blood glucose increased [Unknown]
  - Fall [Unknown]

NARRATIVE: CASE EVENT DATE: 2015
